FAERS Safety Report 6867562-6 (Version None)
Quarter: 2010Q3

REPORT INFORMATION
  Report Type: 
  Country: None (occurrence: None)
  Receive Date: 20100722
  Receipt Date: 20100714
  Transmission Date: 20110219
  Serious: Yes (Hospitalization, Other)
  Sender: FDA-Public Use
  Company Number: US-AMGEN-KDL420957

PATIENT
  Sex: Male

DRUGS (2)
  1. ENBREL [Suspect]
     Indication: RHEUMATOID ARTHRITIS
     Route: 058
  2. METHOTREXATE [Concomitant]

REACTIONS (5)
  - HAEMOGLOBIN DECREASED [None]
  - NODULE ON EXTREMITY [None]
  - RENAL CANCER [None]
  - RHEUMATOID ARTHRITIS [None]
  - SKIN FISSURES [None]
